FAERS Safety Report 4305856-9 (Version None)
Quarter: 2004Q1

REPORT INFORMATION
  Report Type: 
  Country: None (occurrence: None)
  Receive Date: 20040225
  Receipt Date: 20040206
  Transmission Date: 20041129
  Serious: Yes (Hospitalization)
  Sender: FDA-Public Use
  Company Number: F01200400229

PATIENT
  Age: 63 Year
  Sex: Male

DRUGS (7)
  1. FONDAPARINUX SODIUM [Suspect]
     Indication: ORTHOPEDIC PROCEDURE
     Dosage: 2.5 MG
     Route: 058
     Dates: start: 20040115, end: 20040123
  2. PIRITRAMIDE (PIRITRAMIDE) [Concomitant]
  3. THIOCTAID (THIOCTIC ACID) [Concomitant]
  4. VIOXX [Concomitant]
  5. TRAMADOL HCL [Concomitant]
  6. BAZOTON (URTICA EXTRACT) [Concomitant]
  7. CEFAZOLIN [Concomitant]

REACTIONS (1)
  - HAEMARTHROSIS [None]
